FAERS Safety Report 14297456 (Version 1)
Quarter: 2017Q4

REPORT INFORMATION
  Report Type: Report from Study
  Country: US (occurrence: US)
  Receive Date: 20171218
  Receipt Date: 20171218
  Transmission Date: 20180321
  Serious: Yes (Hospitalization, Other)
  Sender: FDA-Public Use
  Company Number: US-ARIAD-2017US008585

PATIENT
  Sex: Female

DRUGS (2)
  1. PONATINIB [Suspect]
     Active Substance: PONATINIB
     Dosage: 15 MG, QD
     Route: 048
  2. PONATINIB [Suspect]
     Active Substance: PONATINIB
     Indication: ACUTE LEUKAEMIA
     Dosage: 30 MG, QD
     Route: 048
     Dates: start: 20170428

REACTIONS (14)
  - Treatment noncompliance [Unknown]
  - Hospitalisation [Unknown]
  - Pelvic fracture [Unknown]
  - Arthralgia [Unknown]
  - Chemotherapy [Unknown]
  - Feeling hot [Unknown]
  - Neuropathy peripheral [Unknown]
  - White blood cell count abnormal [Unknown]
  - Nausea [Unknown]
  - Dizziness [Unknown]
  - Fatigue [Unknown]
  - Spinal compression fracture [Unknown]
  - Back pain [Unknown]
  - Febrile neutropenia [Unknown]
